FAERS Safety Report 23492439 (Version 3)
Quarter: 2025Q3

REPORT INFORMATION
  Report Type: Report from Study
  Country: US (occurrence: US)
  Receive Date: 20240207
  Receipt Date: 20250920
  Transmission Date: 20251021
  Serious: Yes (Hospitalization)
  Sender: ABBVIE
  Company Number: US-ABBVIE-5627555

PATIENT
  Age: 77 Year
  Sex: Female

DRUGS (1)
  1. VENCLEXTA [Suspect]
     Active Substance: VENETOCLAX
     Indication: Acute myeloid leukaemia
     Dosage: TAKE 1 TABLET BY MOUTH  EVERY DAY FOR 21 DAYS, THEN 7 DAYS OFF?FORM STRENGTH: 100 MILLIGRAM
     Route: 048

REACTIONS (1)
  - Chemotherapy [Unknown]
